FAERS Safety Report 15051558 (Version 1)
Quarter: 2018Q3

REPORT INFORMATION
  Report Type: Spontaneous
  Country: CN (occurrence: CN)
  Receive Date: 20180622
  Receipt Date: 20180622
  Transmission Date: 20181010
  Serious: Yes (Other)
  Sender: FDA-Public Use
  Company Number: SE-ASTRAZENECA-2018SE81112

PATIENT
  Sex: Male

DRUGS (1)
  1. RHINOCORT AQUA [Suspect]
     Active Substance: BUDESONIDE
     Dosage: 64.0UG UNKNOWN
     Route: 045

REACTIONS (4)
  - Cachexia [Unknown]
  - Chronic gastritis [Unknown]
  - Weight decreased [Unknown]
  - Intestinal metaplasia [Unknown]
